FAERS Safety Report 9068362 (Version 2)
Quarter: 2019Q1

REPORT INFORMATION
  Report Type: Report from Study
  Country: DE (occurrence: DE)
  Receive Date: 20130128
  Receipt Date: 20190207
  Transmission Date: 20190418
  Serious: Yes (Hospitalization)
  Sender: FDA-Public Use
  Company Number: DE-ROCHE-1182229

PATIENT
  Age: 78 Year
  Sex: Female
  Weight: 62 kg

DRUGS (5)
  1. CAPECITABINE. [Suspect]
     Active Substance: CAPECITABINE
     Indication: BREAST CANCER
     Dosage: ON 05/DEC/2012 CURRENT CYCLE COMPLETED
     Route: 048
     Dates: start: 20110722
  2. BEVACIZUMAB. [Suspect]
     Active Substance: BEVACIZUMAB
     Indication: BREAST CANCER
     Dosage: LAST DOSE PRIOR TO EVENT 22/NOV/2012
     Route: 042
     Dates: start: 20110722
  3. THYROXIN [Suspect]
     Active Substance: LEVOTHYROXINE
     Indication: HYPOTHYROIDISM
     Route: 048
  4. NOVALGIN (METAMIZOLE SODIUM) [Suspect]
     Active Substance: METAMIZOLE SODIUM
     Indication: PAIN
     Route: 048
  5. BISOPROLOL [Concomitant]
     Active Substance: BISOPROLOL
     Indication: HYPERTENSION
     Route: 048

REACTIONS (3)
  - Hyponatraemia [Unknown]
  - Hypertension [Recovered/Resolved]
  - Hypokalaemia [Unknown]

NARRATIVE: CASE EVENT DATE: 201211
